FAERS Safety Report 8873739 (Version 1)
Quarter: 2012Q4

REPORT INFORMATION
  Report Type: 
  Country: FR (occurrence: FR)
  Receive Date: 20121030
  Receipt Date: 20121030
  Transmission Date: 20130627
  Serious: Yes (Death)
  Sender: FDA-Public Use
  Company Number: FR-ASTRAZENECA-2012SE81055

PATIENT
  Age: 37 Year
  Sex: Male

DRUGS (8)
  1. XEROQUEL [Suspect]
     Indication: SCHIZOAFFECTIVE DISORDER
     Route: 048
     Dates: start: 201111
  2. VALIUM [Suspect]
     Route: 048
  3. DEROXAT [Suspect]
     Route: 048
  4. NOZINAN [Suspect]
     Route: 048
     Dates: start: 201207
  5. FORLAX [Suspect]
     Dosage: SEVERAL YEARS
     Route: 048
  6. METHADONE [Suspect]
     Route: 048
     Dates: start: 201206
  7. LYRICA [Suspect]
     Route: 048
  8. VENTOLINE [Suspect]
     Dosage: 3 BOTTLES PER MONTH - SEVERAL YEARS
     Route: 065

REACTIONS (1)
  - Death [Fatal]
